FAERS Safety Report 5352063-7 (Version None)
Quarter: 2007Q2

REPORT INFORMATION
  Report Type: 
  Country: None (occurrence: None)
  Receive Date: 20070611
  Receipt Date: 20070604
  Transmission Date: 20071010
  Serious: Yes (Other)
  Sender: FDA-Public Use
  Company Number: JP-BAYER-200710397BYL

PATIENT
  Age: 39 Year
  Sex: Female

DRUGS (3)
  1. AVELOX [Suspect]
     Indication: BRONCHITIS
     Dosage: UNIT DOSE: 400 MG
     Route: 048
     Dates: start: 20070512, end: 20070513
  2. BROCIN [Concomitant]
     Indication: COUGH
     Route: 048
     Dates: start: 20070507, end: 20070515
  3. MUCODYNE [Concomitant]
     Indication: COUGH
     Dosage: UNIT DOSE: 100 MG
     Route: 048
     Dates: start: 20070507, end: 20070526

REACTIONS (2)
  - NAUSEA [None]
  - PNEUMONIA [None]
